FAERS Safety Report 6017998-0 (Version None)
Quarter: 2008Q4

REPORT INFORMATION
  Report Type: 
  Country: None (occurrence: None)
  Receive Date: 20081223
  Receipt Date: 20081218
  Transmission Date: 20090506
  Serious: Yes (Hospitalization)
  Sender: FDA-Public Use
  Company Number: B0541219A

PATIENT
  Age: 79 Year
  Sex: Male
  Weight: 94.1 kg

DRUGS (10)
  1. LAPATINIB [Suspect]
     Indication: HYPOPHARYNGEAL CANCER
     Route: 048
     Dates: start: 20080919
  2. CISPLATIN [Suspect]
     Indication: LARYNGEAL CANCER
     Route: 042
     Dates: start: 20080919, end: 20080919
  3. FLUOROURACIL [Suspect]
     Indication: HYPOPHARYNGEAL CANCER
     Route: 042
     Dates: start: 20080919, end: 20080923
  4. DOCETAXEL [Suspect]
     Indication: HYPOPHARYNGEAL CANCER
     Route: 042
     Dates: start: 20081010
  5. ALDACTAZINE [Concomitant]
     Indication: HYPERTENSION
     Dosage: 2MG PER DAY
     Route: 048
  6. TILDIEM RETARD [Concomitant]
     Indication: HYPERTENSION
     Dosage: 200MG PER DAY
     Route: 048
  7. SIMVASTATIN [Concomitant]
     Indication: HYPERCHOLESTEROLAEMIA
     Dosage: 2MG PER DAY
     Route: 048
  8. INFLUVAC S [Concomitant]
     Dates: start: 20081003
  9. PRIMPERAN TAB [Concomitant]
     Indication: PROPHYLAXIS
     Dosage: 10MG AS REQUIRED
     Route: 048
  10. CIPROFLOXACIN [Concomitant]
     Indication: PROPHYLAXIS
     Route: 048
     Dates: start: 20081019

REACTIONS (5)
  - ANOREXIA [None]
  - CULTURE URINE POSITIVE [None]
  - DUODENAL ULCER [None]
  - DYSPEPSIA [None]
  - PYREXIA [None]
